FAERS Safety Report 6650398-9 (Version None)
Quarter: 2010Q1

REPORT INFORMATION
  Report Type: 
  Country: None (occurrence: None)
  Receive Date: 20100325
  Receipt Date: 20100318
  Transmission Date: 20100710
  Serious: Yes (Life-Threatening, Hospitalization, Other)
  Sender: FDA-Public Use
  Company Number: US-BAYER-201013179NA

PATIENT
  Age: 46 Year
  Sex: Female
  Weight: 62 kg

DRUGS (11)
  1. SORAFENIB [Suspect]
     Indication: NON-SMALL CELL LUNG CANCER
     Dosage: TOTAL DAILY DOSE: 800 MG  UNIT DOSE: 200 MG
     Route: 048
     Dates: start: 20100215, end: 20100220
  2. SORAFENIB [Suspect]
     Dosage: TOTAL DAILY DOSE: 800 MG  UNIT DOSE: 200 MG
     Route: 048
     Dates: start: 20100111, end: 20100125
  3. SORAFENIB [Suspect]
     Dosage: TOTAL DAILY DOSE: 800 MG  UNIT DOSE: 200 MG
     Route: 048
     Dates: start: 20100222
  4. VORINOSTAT [Suspect]
     Indication: NON-SMALL CELL LUNG CANCER
     Dosage: TOTAL DAILY DOSE: 300 MG
     Route: 048
     Dates: start: 20100222
  5. VORINOSTAT [Suspect]
     Dosage: TOTAL DAILY DOSE: 300 MG
     Route: 048
     Dates: start: 20100111, end: 20100124
  6. OXYCODONE HCL [Concomitant]
  7. LISINOPRIL [Concomitant]
  8. PHENERGAN EXPECTORANT W/ CODEINE [Concomitant]
  9. ZYRTEC [Concomitant]
  10. K-DUR [Concomitant]
  11. ZOFRAN [Concomitant]

REACTIONS (7)
  - HYPOTENSION [None]
  - HYPOXIA [None]
  - NEUTROPENIA [None]
  - PNEUMONIA STREPTOCOCCAL [None]
  - RENAL FAILURE ACUTE [None]
  - SEPTIC SHOCK [None]
  - THROMBOCYTOPENIA [None]
